FAERS Safety Report 6779689 (Version 2)
Quarter: 2013Q3

REPORT INFORMATION
  Report Type: Report from Study
  Country: NL (occurrence: NL)
  Receive Date: 20081006
  Receipt Date: 20130808
  Transmission Date: 20140515
  Serious: Yes (Hospitalization)
  Sender: FDA-Public Use
  Company Number: NL-ROCHE-588069

PATIENT
  Age: 75 Year
  Sex: 0
  Weight: 79 kg

DRUGS (4)
  1. CAPECITABINE [Suspect]
     Indication: GASTRIC CANCER
     Dosage: LAST DOSE PRIOR TO SAE ON 17/SEP/2008
     Route: 048
     Dates: start: 20080326, end: 20081001
  2. CISPLATIN [Suspect]
     Indication: GASTRIC CANCER
     Route: 042
     Dates: start: 20080326, end: 20081001
  3. EPIRUBICIN [Suspect]
     Indication: GASTRIC CANCER
     Route: 042
     Dates: start: 20080326, end: 20081001
  4. VITAMIN B12 [Concomitant]
     Route: 030

REACTIONS (1)
  - Intestinal fistula infection [Recovered/Resolved]
